FAERS Safety Report 13811000 (Version 1)
Quarter: 2017Q3

REPORT INFORMATION
  Report Type: Spontaneous
  Country: US (occurrence: US)
  Receive Date: 20170728
  Receipt Date: 20170728
  Transmission Date: 20171127
  Serious: No
  Sender: FDA-Public Use
  Company Number: US-ROCHE-1192930

PATIENT
  Sex: Female

DRUGS (1)
  1. BONIVA [Suspect]
     Active Substance: IBANDRONATE SODIUM
     Indication: OSTEOPOROSIS
     Dosage: EVERY 3 MONTHS
     Route: 065

REACTIONS (8)
  - Injection site reaction [Unknown]
  - Injection site pain [Unknown]
  - Pain [Unknown]
  - Limb mass [Unknown]
  - Erythema [Not Recovered/Not Resolved]
  - Pain [Not Recovered/Not Resolved]
  - Limb mass [Not Recovered/Not Resolved]
  - Extravasation [Not Recovered/Not Resolved]
